FAERS Safety Report 8492114-4 (Version None)
Quarter: 2012Q3

REPORT INFORMATION
  Report Type: 
  Country: None (occurrence: None)
  Receive Date: 20120706
  Receipt Date: 20120704
  Transmission Date: 20120928
  Serious: No
  Sender: FDA-Public Use
  Company Number: US-PFIZER INC-2011US-44199

PATIENT
  Sex: Female

DRUGS (2)
  1. CALAN [Suspect]
     Indication: HYPERTENSION
     Dosage: 120 MG, UNK
     Route: 065
  2. COZAAR [Suspect]
     Dosage: UNK
     Route: 065

REACTIONS (1)
  - SOMNOLENCE [None]
